FAERS Safety Report 5877729-1 (Version None)
Quarter: 2008Q3

REPORT INFORMATION
  Report Type: 
  Country: None (occurrence: None)
  Receive Date: 20080908
  Receipt Date: 20080908
  Transmission Date: 20090109
  Serious: Yes (Hospitalization)
  Sender: FDA-Public Use
  Company Number: None

PATIENT
  Age: 42 Year
  Sex: Female
  Weight: 55.7924 kg

DRUGS (2)
  1. REMICADE [Suspect]
     Indication: CROHN'S DISEASE
     Dosage: WEIGHT DOSED EVRY 8 WEEKS IV DRIP
     Route: 041
     Dates: start: 20071101, end: 20080701
  2. IMURAN [Suspect]
     Indication: CROHN'S DISEASE
     Dosage: 150 MG/DAY DAILY PO
     Route: 048
     Dates: start: 20020101, end: 20080805

REACTIONS (6)
  - ARTHRALGIA [None]
  - BLASTOMYCOSIS [None]
  - CHILLS [None]
  - HYPERHIDROSIS [None]
  - MYALGIA [None]
  - PYREXIA [None]
